FAERS Safety Report 7080475-2 (Version None)
Quarter: 2010Q4

REPORT INFORMATION
  Report Type: 
  Country: None (occurrence: None)
  Receive Date: 20101103
  Receipt Date: 20101021
  Transmission Date: 20110411
  Serious: Yes (Hospitalization, Other)
  Sender: FDA-Public Use
  Company Number: PHEH2010US02964

PATIENT
  Age: 67 Year
  Sex: Female

DRUGS (4)
  1. TEGRETOL [Suspect]
     Indication: FACIAL SPASM
     Dosage: UNK
     Dates: start: 20080215
  2. TEGRETOL [Suspect]
     Indication: TIC
  3. TEGRETOL-XR [Suspect]
     Indication: FACIAL SPASM
     Dosage: 100 MG, BID
     Dates: start: 20080201
  4. TEGRETOL-XR [Suspect]
     Dosage: 200 MG, BID

REACTIONS (16)
  - ANHEDONIA [None]
  - DEFORMITY [None]
  - DYSPHAGIA [None]
  - EMOTIONAL DISTRESS [None]
  - INJURY [None]
  - JOINT SWELLING [None]
  - MASTICATION DISORDER [None]
  - ORAL DISORDER [None]
  - ORAL PAIN [None]
  - PAIN [None]
  - PYREXIA [None]
  - RASH [None]
  - STEVENS-JOHNSON SYNDROME [None]
  - STRESS [None]
  - SWELLING FACE [None]
  - VIRAL INFECTION [None]
